FAERS Safety Report 6382758-8 (Version None)
Quarter: 2009Q3

REPORT INFORMATION
  Report Type: 
  Country: None (occurrence: None)
  Receive Date: 20090930
  Receipt Date: 20090924
  Transmission Date: 20100115
  Serious: Yes (Life-Threatening)
  Sender: FDA-Public Use
  Company Number: JP-ASTRAZENECA-2009SE16031

PATIENT
  Age: 0 Year
  Sex: Male
  Weight: 0.8 kg

DRUGS (4)
  1. MEROPEN [Suspect]
     Indication: PYREXIA
     Dosage: 20-40 MILLIGRAM/KILOGRAM
     Route: 042
  2. AMBISOME [Suspect]
     Indication: PYREXIA
     Dosage: 2.5 MILLIGRAM/KILOGRAM
  3. VANCOMYCIN [Concomitant]
  4. FUNGUARD [Concomitant]

REACTIONS (2)
  - ANURIA [None]
  - RENAL IMPAIRMENT [None]
